FAERS Safety Report 25285637 (Version 1)
Quarter: 2025Q2

REPORT INFORMATION
  Report Type: Spontaneous
  Country: CN (occurrence: CN)
  Receive Date: 20250509
  Receipt Date: 20250509
  Transmission Date: 20250716
  Serious: Yes (Hospitalization)
  Sender: TAKEDA
  Company Number: CN-HUTCHMED LIMITED-HMP2025CN01102

PATIENT
  Age: 74 Year
  Sex: Male
  Weight: 50 kg

DRUGS (2)
  1. FRUQUINTINIB [Suspect]
     Active Substance: FRUQUINTINIB
     Indication: Adenocarcinoma gastric
     Dosage: 2 MILLIGRAM, QD
     Dates: start: 20250428, end: 20250429
  2. PACLITAXEL [Concomitant]
     Active Substance: PACLITAXEL
     Indication: Adenocarcinoma gastric
     Dosage: 100 MILLIGRAM, QD
     Dates: start: 20250428, end: 20250428

REACTIONS (5)
  - Haemoglobin decreased [Unknown]
  - Red blood cell count decreased [Unknown]
  - Granulocyte count decreased [Unknown]
  - Off label use [Unknown]
  - Lymphocyte count decreased [Unknown]

NARRATIVE: CASE EVENT DATE: 20250428
